FAERS Safety Report 6987647-3 (Version None)
Quarter: 2010Q3

REPORT INFORMATION
  Report Type: 
  Country: None (occurrence: None)
  Receive Date: 20100914
  Receipt Date: 20100905
  Transmission Date: 20110219
  Serious: Yes (Congenital Anomaly)
  Sender: FDA-Public Use
  Company Number: 8047934

PATIENT
  Sex: Male
  Weight: 2.8 kg

DRUGS (6)
  1. KEPPRA [Suspect]
     Indication: COMPLEX PARTIAL SEIZURES
     Dosage: 750 MG BID TRANSPLACENTAL
     Route: 064
  2. KEPPRA [Suspect]
     Indication: CONVULSION
     Dosage: 750 MG BID TRANSPLACENTAL
     Route: 064
  3. PRENATAL VITAMINS [Concomitant]
  4. NICORETTE [Concomitant]
  5. CODEINE SUL TAB [Concomitant]
  6. DARVOCET-N 100 [Concomitant]

REACTIONS (3)
  - EYELID PTOSIS CONGENITAL [None]
  - MATERNAL DRUGS AFFECTING FOETUS [None]
  - STREPTOCOCCUS TEST POSITIVE [None]
